FAERS Safety Report 15016743 (Version 1)
Quarter: 2018Q2

REPORT INFORMATION
  Report Type: Spontaneous
  Country: US (occurrence: US)
  Receive Date: 20180615
  Receipt Date: 20180615
  Transmission Date: 20180711
  Serious: Yes (Other)
  Sender: FDA-Public Use
  Company Number: US-TEVA-2018-US-904395

PATIENT
  Sex: Female

DRUGS (1)
  1. METFORMIN [Suspect]
     Active Substance: METFORMIN HYDROCHLORIDE
     Indication: PRODUCT USED FOR UNKNOWN INDICATION
     Dosage: FORM STRENGTH: 500 (UNIT NOT REPORTED)
     Route: 065
     Dates: start: 2016

REACTIONS (6)
  - Nausea [Unknown]
  - Gluten sensitivity [Unknown]
  - Fatigue [Unknown]
  - Pain [Unknown]
  - Coeliac disease [Unknown]
  - Influenza like illness [Unknown]

NARRATIVE: CASE EVENT DATE: 201707
